FAERS Safety Report 9056927 (Version 1)
Quarter: 2013Q1

REPORT INFORMATION
  Report Type: Report from Study
  Country: US (occurrence: US)
  Receive Date: 20130131
  Receipt Date: 20130131
  Transmission Date: 20140127
  Serious: No
  Sender: FDA-Public Use
  Company Number: US-ABBOTT-12P-163-0991028-00

PATIENT
  Age: 41 Year
  Sex: Male

DRUGS (5)
  1. HUMIRA [Suspect]
     Indication: CROHN^S DISEASE
     Dates: start: 201201
  2. PENTASA [Concomitant]
  3. CIPRO [Concomitant]
     Indication: MUCOUS STOOLS
     Dosage: 1 TABLET 3 TIMES DAILY AS NEEDED (APPROXIMATELY TWICE MONTHLY)
  4. PREDNISONE [Concomitant]
     Dosage: DAILY
  5. PREDNISONE [Concomitant]
     Dosage: WEANED DOWN TO 5MG 1 TABLET DAILY

REACTIONS (2)
  - Device malfunction [Unknown]
  - Impaired healing [Recovering/Resolving]
